FAERS Safety Report 16676657 (Version 1)
Quarter: 2019Q3

REPORT INFORMATION
  Report Type: Spontaneous
  Country: CA (occurrence: CA)
  Receive Date: 20190807
  Receipt Date: 20190807
  Transmission Date: 20191004
  Serious: Yes (Other)
  Sender: FDA-Public Use
  Company Number: CA-ROCHE-2364975

PATIENT
  Age: 77 Year
  Sex: Female

DRUGS (3)
  1. HYDROCORTISONE. [Concomitant]
     Active Substance: HYDROCORTISONE
     Indication: LYMPHOMA
     Dosage: 100 MG Q28D X 6 THEN Q 3 MONTHS X 2 YEARS
     Route: 042
     Dates: start: 20160808, end: 20161229
  2. BENDAMUSTINE [Suspect]
     Active Substance: BENDAMUSTINE
     Indication: B-CELL LYMPHOMA RECURRENT
     Dosage: 150 MG Q28D X 6
     Route: 042
     Dates: start: 20160808, end: 20161229
  3. RITUXAN [Suspect]
     Active Substance: RITUXIMAB
     Indication: B-CELL LYMPHOMA RECURRENT
     Dosage: EVERY 28 DAYS FOR 6 CYCLES THEN EVERY 3 MONTHS X 2 YEARS
     Route: 042
     Dates: start: 20160808, end: 20190121

REACTIONS (1)
  - Progressive multifocal leukoencephalopathy [Unknown]

NARRATIVE: CASE EVENT DATE: 20190706
